FAERS Safety Report 20498776 (Version 1)
Quarter: 2022Q1

REPORT INFORMATION
  Report Type: Report from Study
  Country: GB (occurrence: GB)
  Receive Date: 20220222
  Receipt Date: 20220222
  Transmission Date: 20220423
  Serious: Yes (Hospitalization, Other)
  Sender: FDA-Public Use
  Company Number: None

PATIENT
  Age: 78 Year
  Sex: Female

DRUGS (2)
  1. METHOTREXATE [Suspect]
     Active Substance: METHOTREXATE
     Indication: Product used for unknown indication
     Route: 065
  2. ETANERCEPT [Suspect]
     Active Substance: ETANERCEPT
     Indication: Rheumatoid arthritis
     Route: 058
     Dates: start: 20211102

REACTIONS (12)
  - Lower respiratory tract infection [Unknown]
  - Immunosuppression [Unknown]
  - Diabetes mellitus [Unknown]
  - Hypertension [Unknown]
  - Rheumatoid arthritis [Unknown]
  - Blood test abnormal [Unknown]
  - Urinary tract infection [Unknown]
  - Infection [Unknown]
  - Adverse drug reaction [Unknown]
  - Chronic obstructive pulmonary disease [Unknown]
  - Illness [Unknown]
  - Crying [Unknown]
